FAERS Safety Report 18973215 (Version 1)
Quarter: 2021Q1

REPORT INFORMATION
  Report Type: Spontaneous
  Country: US (occurrence: US)
  Receive Date: 20210304
  Receipt Date: 20210304
  Transmission Date: 20210420
  Serious: Yes (Hospitalization)
  Sender: FDA-Public Use
  Company Number: None

PATIENT
  Age: 34 Year
  Sex: Male

DRUGS (1)
  1. VENLAFAXINE (VENLAFAXINE HCL 37.5MG 24HR CAP, SA) [Suspect]
     Active Substance: VENLAFAXINE HYDROCHLORIDE
     Indication: SCHIZOPHRENIA
     Route: 048
     Dates: start: 20201209, end: 20201210

REACTIONS (6)
  - Impulsive behaviour [None]
  - Agitation [None]
  - Hallucination [None]
  - Sleep deficit [None]
  - Delusion [None]
  - Mania [None]

NARRATIVE: CASE EVENT DATE: 20201212
